FAERS Safety Report 9979545 (Version 1)
Quarter: 2014Q1

REPORT INFORMATION
  Report Type: Report from Study
  Country: US (occurrence: US)
  Receive Date: 20140306
  Receipt Date: 20140306
  Transmission Date: 20141002
  Serious: No
  Sender: FDA-Public Use
  Company Number: US-ABBVIE-13P-163-1171089-00

PATIENT
  Age: 36 Year
  Sex: Female

DRUGS (2)
  1. HUMIRA [Suspect]
     Indication: CROHN^S DISEASE
     Dates: start: 201309
  2. HUMIRA [Suspect]
     Dates: start: 20131102

REACTIONS (5)
  - Pain [Unknown]
  - Scarlet fever [Not Recovered/Not Resolved]
  - Anxiety [Unknown]
  - Agitation [Unknown]
  - Panic reaction [Unknown]
